FAERS Safety Report 23798254 (Version 2)
Quarter: 2024Q2

REPORT INFORMATION
  Report Type: Spontaneous
  Country: US (occurrence: US)
  Receive Date: 20240430
  Receipt Date: 20240608
  Transmission Date: 20240716
  Serious: Yes (Other)
  Sender: FDA-Public Use
  Company Number: US-AUROBINDO-AUR-APL-2024-019001

PATIENT
  Age: 48 Year
  Sex: Male

DRUGS (1)
  1. ESMOLOL [Suspect]
     Active Substance: ESMOLOL HYDROCHLORIDE
     Indication: Acute myocardial infarction
     Dosage: UNK
     Route: 042

REACTIONS (4)
  - Skin necrosis [Unknown]
  - Injection site oedema [Unknown]
  - Injection site pain [Unknown]
  - Injection site vesicles [Unknown]
